FAERS Safety Report 8936737 (Version 2)
Quarter: 2012Q4

REPORT INFORMATION
  Report Type: 
  Country: BR (occurrence: BR)
  Receive Date: 20121130
  Receipt Date: 20121219
  Transmission Date: 20130627
  Serious: Yes (Disabling)
  Sender: FDA-Public Use
  Company Number: BR-BAYER-2012-121353

PATIENT
  Age: 68 Year
  Sex: Female
  Weight: 51 kg

DRUGS (7)
  1. MOXIFLOXACIN ORAL [Suspect]
     Indication: LEG PAIN
     Dosage: 400 mg, ONCE
     Route: 048
     Dates: start: 20121113, end: 20121113
  2. MOXIFLOXACIN ORAL [Suspect]
     Indication: ISCHEMIC ULCER
  3. VIAGRA [Concomitant]
     Indication: DISORDER CIRCULATORY SYSTEM
     Dosage: 25 mg, BID
     Route: 048
     Dates: start: 200812
  4. CILOSTAZOL [Concomitant]
     Indication: DISORDER CIRCULATORY SYSTEM
     Dosage: 50 mg, BID
     Route: 048
     Dates: start: 2009
  5. DIOSMIN W/HESPERIDIN [Concomitant]
     Indication: DISORDER CIRCULATORY SYSTEM
     Dosage: 1 DF, BID
     Route: 048
     Dates: start: 20120709
  6. TRACLEER [Concomitant]
     Indication: DISORDER CIRCULATORY SYSTEM
     Dosage: 125 mg, BID
     Route: 048
     Dates: start: 2010
  7. PANTOPRAZOLE [Concomitant]
     Indication: GERD
     Dosage: 30 mg, QD
     Route: 048
     Dates: start: 1992

REACTIONS (7)
  - Poor peripheral circulation [Recovering/Resolving]
  - Musculoskeletal stiffness [Recovering/Resolving]
  - Pallor [Recovering/Resolving]
  - Fingerprint loss [Recovering/Resolving]
  - Chest pain [Recovered/Resolved]
  - Pain [Not Recovered/Not Resolved]
  - Off label use [None]
